FAERS Safety Report 25519581 (Version 3)
Quarter: 2025Q3

REPORT INFORMATION
  Report Type: Report from Study
  Country: US (occurrence: US)
  Receive Date: 20250704
  Receipt Date: 20250804
  Transmission Date: 20251020
  Serious: No
  Sender: MALLINCKRODT
  Company Number: US-MALLINCKRODT-MNK202503857

PATIENT
  Age: 11 Month
  Sex: Male
  Weight: 9 kg

DRUGS (4)
  1. CORTICOTROPIN [Suspect]
     Active Substance: CORTICOTROPIN
     Indication: Infantile spasms
     Dosage: 32 UNITS
     Route: 030
     Dates: start: 20250618, end: 2025
  2. CORTICOTROPIN [Suspect]
     Active Substance: CORTICOTROPIN
     Route: 030
     Dates: start: 2025
  3. MULTIVITAMIN [ASCORBIC ACID;CALCIUM CARBONATE;CYANOCOBALAMIN;NICOTINAM [Concomitant]
  4. FAMOTIDINE [Concomitant]
     Active Substance: FAMOTIDINE

REACTIONS (4)
  - Irritability [Not Recovered/Not Resolved]
  - Fluid retention [Not Recovered/Not Resolved]
  - Increased appetite [Unknown]
  - Constipation [Not Recovered/Not Resolved]

NARRATIVE: CASE EVENT DATE: 20250101
